FAERS Safety Report 12331171 (Version 2)
Quarter: 2016Q2

REPORT INFORMATION
  Report Type: Spontaneous
  Country: US (occurrence: US)
  Receive Date: 20160504
  Receipt Date: 20160519
  Transmission Date: 20160815
  Serious: No
  Sender: FDA-Public Use
  Company Number: US-009507513-1605USA001567

PATIENT
  Sex: Female

DRUGS (1)
  1. NEXPLANON [Suspect]
     Active Substance: ETONOGESTREL
     Indication: CONTRACEPTION
     Dosage: 1 DF, UNK, 68 MG/ 1 ROD PER 3 YEARS
     Route: 059

REACTIONS (4)
  - Device expulsion [Unknown]
  - Product quality issue [Unknown]
  - Device difficult to use [Unknown]
  - No adverse event [Unknown]
